FAERS Safety Report 13986113 (Version 1)
Quarter: 2017Q3

REPORT INFORMATION
  Report Type: Report from Study
  Country: None (occurrence: US)
  Receive Date: 20170919
  Receipt Date: 20170919
  Transmission Date: 20171128
  Serious: Yes (Other)
  Sender: FDA-Public Use
  Company Number: US-ABBVIE-17K-163-2101678-00

PATIENT
  Sex: Male
  Weight: 79.45 kg

DRUGS (3)
  1. ATORVASTATIN [Concomitant]
     Active Substance: ATORVASTATIN
     Indication: BLOOD CHOLESTEROL INCREASED
  2. HUMIRA [Suspect]
     Active Substance: ADALIMUMAB
     Indication: ANKYLOSING SPONDYLITIS
     Route: 058
     Dates: start: 201502, end: 2017
  3. TAMSULOSIN [Concomitant]
     Active Substance: TAMSULOSIN
     Indication: NOCTURIA

REACTIONS (4)
  - Erythema [Recovered/Resolved]
  - Peripheral swelling [Recovered/Resolved]
  - Cervical spinal stenosis [Recovering/Resolving]
  - Feeling hot [Recovered/Resolved]

NARRATIVE: CASE EVENT DATE: 2016
